FAERS Safety Report 5641829-1 (Version None)
Quarter: 2008Q1

REPORT INFORMATION
  Report Type: 
  Country: None (occurrence: None)
  Receive Date: 20080227
  Receipt Date: 20080215
  Transmission Date: 20080703
  Serious: Yes (Other)
  Sender: FDA-Public Use
  Company Number: JP-PFIZER INC-2008015672

PATIENT
  Age: 22 Year
  Sex: Female

DRUGS (3)
  1. GABAPEN [Suspect]
     Dosage: DAILY DOSE:1500MG
     Route: 048
  2. PHENYTOIN [Suspect]
     Route: 048
  3. PHENOBAL [Suspect]

REACTIONS (3)
  - ALANINE AMINOTRANSFERASE INCREASED [None]
  - ASPARTATE AMINOTRANSFERASE INCREASED [None]
  - GAMMA-GLUTAMYLTRANSFERASE INCREASED [None]
